FAERS Safety Report 7204333-5 (Version None)
Quarter: 2010Q4

REPORT INFORMATION
  Report Type: 
  Country: None (occurrence: None)
  Receive Date: 20101230
  Receipt Date: 20101222
  Transmission Date: 20110411
  Serious: Yes (Hospitalization)
  Sender: FDA-Public Use
  Company Number: JP-TEVA-261252ISR

PATIENT
  Age: 55 Year
  Sex: Male
  Weight: 56.2 kg

DRUGS (13)
  1. CISPLATIN [Suspect]
     Indication: OESOPHAGEAL CARCINOMA
     Route: 042
     Dates: start: 20100914, end: 20100914
  2. DOCETAXEL [Suspect]
     Indication: OESOPHAGEAL CARCINOMA
     Route: 042
     Dates: start: 20100914, end: 20100914
  3. AMINO ACIDS NOS, MINERALS NOS, VITAMINS NOS [Concomitant]
  4. APREPITANT [Concomitant]
  5. RABEPRAZOLE SODIUM [Concomitant]
  6. MAGNESIUM HYDROXIDE, PARAFFIN, LIQUID [Concomitant]
  7. FUROSEMIDE [Concomitant]
  8. MANNITOL [Concomitant]
  9. GRANISETRON HCL [Concomitant]
  10. DEXAMETHASONE [Concomitant]
  11. CALCIUM CHLORIDE ANHYDROUS, POTASSIUM CHLORIDE, SODIUM CHLORIDE, SODIU [Concomitant]
  12. HEPARIN SODIUM [Concomitant]
  13. FLUOROURACIL [Suspect]
     Indication: OESOPHAGEAL CARCINOMA
     Route: 041
     Dates: start: 20100914, end: 20100915

REACTIONS (2)
  - GASTROINTESTINAL PERFORATION [None]
  - PERITONITIS [None]
